FAERS Safety Report 5467597-4 (Version None)
Quarter: 2007Q3

REPORT INFORMATION
  Report Type: 
  Country: None (occurrence: None)
  Receive Date: 20070925
  Receipt Date: 20070914
  Transmission Date: 20080115
  Serious: Yes (Hospitalization)
  Sender: FDA-Public Use
  Company Number: CH-GILEAD-2007-0012759

PATIENT
  Age: 62 Year
  Sex: Male

DRUGS (8)
  1. VIREAD [Suspect]
     Indication: HIV INFECTION
     Route: 048
     Dates: start: 20051001, end: 20070601
  2. STOCRIN [Suspect]
     Indication: HIV INFECTION
     Route: 048
     Dates: start: 20060101, end: 20070601
  3. 3TC [Suspect]
     Indication: HIV INFECTION
     Route: 048
     Dates: end: 20070601
  4. PANTOPRAZOLE SODIUM [Suspect]
     Indication: GASTRITIS
     Route: 048
     Dates: end: 20070601
  5. KEPPRA [Suspect]
     Indication: EPILEPSY
     Route: 048
     Dates: end: 20070601
  6. PRADIF [Suspect]
     Indication: PROSTATIC DISORDER
     Route: 048
     Dates: end: 20070601
  7. DUROGESIC 25 UG/H TTS [Suspect]
     Indication: PAIN
     Dates: end: 20070601
  8. VALCYTE [Suspect]
     Route: 048
     Dates: end: 20070612

REACTIONS (5)
  - BLOOD ALKALINE PHOSPHATASE INCREASED [None]
  - DERMATITIS EXFOLIATIVE [None]
  - GAMMA-GLUTAMYLTRANSFERASE INCREASED [None]
  - PHOTOSENSITIVITY REACTION [None]
  - RASH ERYTHEMATOUS [None]
